FAERS Safety Report 14472561 (Version 1)
Quarter: 2018Q1

REPORT INFORMATION
  Report Type: Report from Study
  Country: US (occurrence: US)
  Receive Date: 20180201
  Receipt Date: 20180201
  Transmission Date: 20180509
  Serious: Yes (Other)
  Sender: FDA-Public Use
  Company Number: PHEH2018US002815

PATIENT
  Sex: Male

DRUGS (1)
  1. ENTRESTO [Suspect]
     Active Substance: SACUBITRIL\VALSARTAN
     Indication: PRODUCT USED FOR UNKNOWN INDICATION
     Route: 048

REACTIONS (7)
  - Fluid retention [Unknown]
  - Chest pain [Unknown]
  - Asthenia [Unknown]
  - Diabetes mellitus [Unknown]
  - Insomnia [Unknown]
  - Neuropathy peripheral [Unknown]
  - Memory impairment [Unknown]
